FAERS Safety Report 25793018 (Version 1)
Quarter: 2025Q3

REPORT INFORMATION
  Report Type: Spontaneous
  Country: GB (occurrence: GB)
  Receive Date: 20250911
  Receipt Date: 20250911
  Transmission Date: 20251020
  Serious: Yes (Hospitalization)
  Sender: DR REDDYS
  Company Number: None

PATIENT
  Age: 35 Year

DRUGS (3)
  1. CLARITHROMYCIN [Suspect]
     Active Substance: CLARITHROMYCIN
     Indication: Product used for unknown indication
     Route: 042
  2. Beclometasone 200 micrograms / dose /  Formoterol 6 micrograms / dose [Concomitant]
     Indication: Product used for unknown indication
     Dosage: ONE PUFF TO BE INHALED TWICE A DAY
  3. Salamol 100 micrograms / dose inhaler CFC free [Concomitant]
     Indication: Product used for unknown indication
     Dosage: ONE OR TWO PUFFS TO BE INHALED UP TO FOUR TIMES A DAY

REACTIONS (2)
  - Erythema [Recovered/Resolved]
  - Discomfort [Recovered/Resolved]
